FAERS Safety Report 8660279 (Version 4)
Quarter: 2014Q3

REPORT INFORMATION
  Report Type: Report from Study
  Country: DE (occurrence: DE)
  Receive Date: 20120711
  Receipt Date: 20140729
  Transmission Date: 20150326
  Serious: Yes (Hospitalization)
  Sender: FDA-Public Use
  Company Number: DE-GLAXOSMITHKLINE-B0813683A

PATIENT
  Age: 46 Year
  Sex: Female
  Weight: 57 kg

DRUGS (5)
  1. BLINDED TRIAL MEDICATION [Suspect]
     Active Substance: UNSPECIFIED INGREDIENT
     Indication: OVARIAN CANCER RECURRENT
     Dosage: 400MG PER DAY
     Route: 048
     Dates: start: 20120514
  2. CIPROBAY [Concomitant]
     Active Substance: CIPROFLOXACIN
     Indication: PROPHYLAXIS
     Dosage: 800MG PER DAY
     Route: 042
     Dates: start: 20120702, end: 20120702
  3. FRAGMIN [Concomitant]
     Active Substance: DALTEPARIN SODIUM
     Indication: THROMBOSIS PROPHYLAXIS
     Dosage: 2.5UNIT PER DAY
     Route: 058
     Dates: start: 20120702, end: 20120702
  4. TOPOTECAN [Suspect]
     Active Substance: TOPOTECAN\TOPOTECAN HYDROCHLORIDE
     Indication: OVARIAN CANCER RECURRENT
     Dosage: 1.25MG THREE TIMES PER WEEK
     Route: 042
     Dates: start: 20120514
  5. PANTOZOL [Concomitant]
     Active Substance: PANTOPRAZOLE SODIUM
     Indication: DYSPEPSIA
     Dosage: 40MG PER DAY
     Route: 048
     Dates: start: 20120702, end: 20120702

REACTIONS (2)
  - Thrombocytosis [Recovered/Resolved]
  - Ascites [Recovered/Resolved]

NARRATIVE: CASE EVENT DATE: 20120702
